FAERS Safety Report 5248682-9 (Version None)
Quarter: 2007Q1

REPORT INFORMATION
  Report Type: 
  Country: None (occurrence: None)
  Receive Date: 20070226
  Receipt Date: 20070226
  Transmission Date: 20070707
  Serious: Yes (Death)
  Sender: FDA-Public Use
  Company Number: None

PATIENT
  Age: 71 Year
  Sex: Male

DRUGS (2)
  1. TNKASE [Suspect]
     Dosage: 50 MG OTO IV
     Route: 042
  2. HEPARIN [Suspect]
     Dosage: DRIP IV
     Route: 041

REACTIONS (1)
  - HAEMORRHAGIC TRANSFORMATION STROKE [None]
